FAERS Safety Report 12337178 (Version 1)
Quarter: 2016Q2

REPORT INFORMATION
  Report Type: Spontaneous
  Country: US (occurrence: None)
  Receive Date: 20160504
  Receipt Date: 20160504
  Transmission Date: 20160815
  Serious: Yes (Disabling)
  Sender: FDA-Public Use
  Company Number: None

PATIENT
  Age: 65 Year
  Sex: Female
  Weight: 109.77 kg

DRUGS (3)
  1. LEVEMIR [Suspect]
     Active Substance: INSULIN DETEMIR
  2. HUMALOG [Suspect]
     Active Substance: INSULIN LISPRO
  3. NOVOLOG [Suspect]
     Active Substance: INSULIN ASPART
     Indication: DIABETES MELLITUS
     Dosage: VARIES 4-10 UNITS 4X/DAY INJECTION
     Dates: start: 20151103

REACTIONS (5)
  - Tinnitus [None]
  - Neuropathy peripheral [None]
  - Headache [None]
  - Metal poisoning [None]
  - Constipation [None]

NARRATIVE: CASE EVENT DATE: 201511
